FAERS Safety Report 19989525 (Version 3)
Quarter: 2021Q4

REPORT INFORMATION
  Report Type: Spontaneous
  Country: US (occurrence: US)
  Receive Date: 20211025
  Receipt Date: 20211107
  Transmission Date: 20220303
  Serious: Yes (Death, Hospitalization, Other)
  Sender: FDA-Public Use
  Company Number: US-AMGEN-USASP2021159295

PATIENT
  Age: 50 Year
  Sex: Male

DRUGS (2)
  1. RITUXIMAB [Suspect]
     Active Substance: RITUXIMAB
     Indication: Multiple sclerosis
     Dosage: UNK UNK, QMO
     Route: 065
  2. RITUXIMAB [Suspect]
     Active Substance: RITUXIMAB
     Indication: Off label use

REACTIONS (5)
  - Death [Fatal]
  - Pneumonia adenoviral [Unknown]
  - Respiratory failure [Unknown]
  - Abdominal discomfort [Unknown]
  - Off label use [Unknown]
